FAERS Safety Report 12283492 (Version 1)
Quarter: 2016Q2

REPORT INFORMATION
  Report Type: Spontaneous
  Country: US (occurrence: US)
  Receive Date: 20160419
  Receipt Date: 20160419
  Transmission Date: 20160815
  Serious: No
  Sender: FDA-Public Use
  Company Number: US-BANPHARM-20153727

PATIENT
  Age: 64 Year
  Sex: Female
  Weight: 43.09 kg

DRUGS (2)
  1. ALEVE [Suspect]
     Active Substance: NAPROXEN SODIUM
     Dosage: 1 DF, Q12H
     Route: 048
     Dates: start: 20150226, end: 201503
  2. ABILIFY [Concomitant]
     Active Substance: ARIPIPRAZOLE

REACTIONS (4)
  - Swelling face [Not Recovered/Not Resolved]
  - Drug effect incomplete [Unknown]
  - Dyspepsia [Not Recovered/Not Resolved]
  - Eyelid oedema [Not Recovered/Not Resolved]

NARRATIVE: CASE EVENT DATE: 201503
